FAERS Safety Report 16435368 (Version 1)
Quarter: 2019Q2

REPORT INFORMATION
  Report Type: Spontaneous
  Country: US (occurrence: US)
  Receive Date: 20190614
  Receipt Date: 20190614
  Transmission Date: 20190711
  Serious: No
  Sender: FDA-Public Use
  Company Number: US-BAUSCH-BL-2019-015824

PATIENT
  Sex: Female

DRUGS (5)
  1. NP THYROID [Concomitant]
     Active Substance: LEVOTHYROXINE\LIOTHYRONINE
     Indication: PRODUCT USED FOR UNKNOWN INDICATION
  2. FLUNISOLIDE NASAL [Concomitant]
     Indication: PRODUCT USED FOR UNKNOWN INDICATION
  3. DORZOLAMIDE HYDROCHLORIDE AND TIMOLOL MALEATE OPHTHALMIC SOLN 2%/0.5% [Suspect]
     Active Substance: DORZOLAMIDE HYDROCHLORIDE\TIMOLOL MALEATE
     Indication: INTRAOCULAR PRESSURE INCREASED
     Dosage: USING FROM AT LEAST THE PAST 6 MONTHS
     Route: 047
     Dates: start: 2018
  4. LATANOPROST. [Concomitant]
     Active Substance: LATANOPROST
     Indication: PRODUCT USED FOR UNKNOWN INDICATION
  5. ALPRAZOLAM. [Concomitant]
     Active Substance: ALPRAZOLAM
     Indication: PRODUCT USED FOR UNKNOWN INDICATION

REACTIONS (5)
  - Drug ineffective [Unknown]
  - Intraocular pressure increased [Unknown]
  - Product quality issue [Unknown]
  - Product physical consistency issue [Unknown]
  - Condition aggravated [Unknown]

NARRATIVE: CASE EVENT DATE: 2019
